FAERS Safety Report 4454059-6 (Version None)
Quarter: 2004Q3

REPORT INFORMATION
  Report Type: 
  Country: None (occurrence: None)
  Receive Date: 20040920
  Receipt Date: 20040909
  Transmission Date: 20050211
  Serious: Yes (Death)
  Sender: FDA-Public Use
  Company Number: PHFR2004GB03408

PATIENT
  Age: 44 Year
  Sex: Male

DRUGS (1)
  1. MELLARIL [Suspect]
     Route: 065

REACTIONS (4)
  - ARRHYTHMIA [None]
  - DRUG LEVEL INCREASED [None]
  - OVERDOSE [None]
  - POISONING [None]
